FAERS Safety Report 22639092 (Version 1)
Quarter: 2023Q2

REPORT INFORMATION
  Report Type: Spontaneous
  Country: GB (occurrence: GB)
  Receive Date: 20230626
  Receipt Date: 20230626
  Transmission Date: 20230722
  Serious: Yes (Other)
  Sender: FDA-Public Use
  Company Number: GB-MHRA-EYC 00264452

PATIENT
  Age: 42 Year
  Sex: Female

DRUGS (1)
  1. FLECAINIDE [Suspect]
     Active Substance: FLECAINIDE
     Indication: Ill-defined disorder
     Dosage: 50 MILLIGRAM
     Route: 048
     Dates: start: 20210929, end: 20211019

REACTIONS (4)
  - Increased tendency to bruise [Recovering/Resolving]
  - Pain [Unknown]
  - Pruritus [Recovering/Resolving]
  - Vascular pain [Recovering/Resolving]

NARRATIVE: CASE EVENT DATE: 20211014
